FAERS Safety Report 14117960 (Version 1)
Quarter: 2017Q4

REPORT INFORMATION
  Report Type: Spontaneous
  Country: US (occurrence: US)
  Receive Date: 20171023
  Receipt Date: 20171023
  Transmission Date: 20180321
  Serious: No
  Sender: FDA-Public Use
  Company Number: US-ALLERGAN-1671911US

PATIENT
  Age: 87 Year
  Sex: Male
  Weight: 61.22 kg

DRUGS (3)
  1. LINZESS [Suspect]
     Active Substance: LINACLOTIDE
     Dosage: 145 ?G, BID
     Route: 048
     Dates: start: 20161008
  2. MIRALAX [Concomitant]
     Active Substance: POLYETHYLENE GLYCOL 3350
     Indication: CONSTIPATION
     Dosage: UNK
     Route: 048
  3. LINZESS [Suspect]
     Active Substance: LINACLOTIDE
     Indication: CONSTIPATION
     Dosage: 145 ?G, QD
     Route: 048
     Dates: start: 20161008

REACTIONS (2)
  - Drug ineffective [Unknown]
  - Flatulence [Not Recovered/Not Resolved]

NARRATIVE: CASE EVENT DATE: 201609
